FAERS Safety Report 10372806 (Version 2)
Quarter: 2014Q3

REPORT INFORMATION
  Report Type: Spontaneous
  Country: US (occurrence: US)
  Receive Date: 20140808
  Receipt Date: 20140808
  Transmission Date: 20150326
  Serious: Yes (Other)
  Sender: FDA-Public Use
  Company Number: US-BRISTOL-MYERS SQUIBB COMPANY-19457175

PATIENT
  Age: 62 Year
  Sex: Male
  Weight: 95.24 kg

DRUGS (9)
  1. IMITREX [Concomitant]
     Active Substance: SUMATRIPTAN\SUMATRIPTAN SUCCINATE
  2. FISH OIL [Concomitant]
     Active Substance: FISH OIL
  3. SIMVASTATIN. [Concomitant]
     Active Substance: SIMVASTATIN
  4. NEURONTIN [Concomitant]
     Active Substance: GABAPENTIN
  5. MULTIVITAMIN [Concomitant]
     Active Substance: VITAMINS
  6. VITAMIN D [Concomitant]
     Active Substance: CHOLECALCIFEROL
  7. SPRYCEL [Suspect]
     Active Substance: DASATINIB
     Indication: CHRONIC MYELOID LEUKAEMIA
     Route: 048
     Dates: start: 201212, end: 20130912
  8. TRILIPIX [Concomitant]
     Active Substance: FENOFIBRIC ACID
  9. DOXAZOSIN [Concomitant]
     Active Substance: DOXAZOSIN\DOXAZOSIN MESYLATE

REACTIONS (1)
  - Pleural effusion [Recovering/Resolving]

NARRATIVE: CASE EVENT DATE: 20130826
